FAERS Safety Report 8595856-5 (Version None)
Quarter: 2012Q3

REPORT INFORMATION
  Report Type: 
  Country: None (occurrence: None)
  Receive Date: 20120815
  Receipt Date: 20120808
  Transmission Date: 20120928
  Serious: Yes (Other)
  Sender: FDA-Public Use
  Company Number: US-PFIZER INC-2012194555

PATIENT
  Age: 56 Year
  Sex: Female
  Weight: 70.295 kg

DRUGS (9)
  1. NEXIUM [Concomitant]
     Indication: ULCER
     Dosage: 40 MG, DAILY
  2. TEGRETOL-XR [Concomitant]
     Indication: CONVULSION
     Dosage: 800 MG, DAILY
     Route: 048
  3. ADVIL PM [Concomitant]
     Indication: BACK PAIN
     Dosage: UNK, DAILY AT NIGHT
  4. BACLOFEN [Concomitant]
     Indication: BACK PAIN
     Dosage: 20 MG, DAILY
     Route: 048
  5. AMITRIPTYLINE [Concomitant]
     Indication: MIGRAINE
  6. LYRICA [Suspect]
     Indication: MIGRAINE
  7. AMITRIPTYLINE [Concomitant]
     Indication: BACK PAIN
     Dosage: 25 MG, DAILY
  8. LYRICA [Suspect]
     Indication: CONVULSION
     Dosage: 75 MG, DAILY
     Route: 048
     Dates: end: 20120701
  9. LYRICA [Suspect]
     Indication: BACK PAIN

REACTIONS (4)
  - PAIN [None]
  - MOVEMENT DISORDER [None]
  - OFF LABEL USE [None]
  - ANKLE FRACTURE [None]
